FAERS Safety Report 7739959-3 (Version None)
Quarter: 2011Q3

REPORT INFORMATION
  Report Type: 
  Country: None (occurrence: None)
  Receive Date: 20110909
  Receipt Date: 20110830
  Transmission Date: 20111222
  Serious: Yes (Hospitalization, Other)
  Sender: FDA-Public Use
  Company Number: ES-JNJFOC-20110708566

PATIENT
  Sex: Male
  Weight: 59.7 kg

DRUGS (7)
  1. REMICADE [Suspect]
     Indication: CROHN'S DISEASE
     Route: 042
  2. AZATHIOPRINE [Concomitant]
     Indication: CROHN'S DISEASE
     Route: 048
  3. REMICADE [Suspect]
     Indication: COLITIS ULCERATIVE
     Route: 042
  4. PANTOPRAZOLE [Concomitant]
     Indication: GASTROINTESTINAL DISORDER THERAPY
     Route: 048
  5. BUTYLSCOPOLAMINE [Concomitant]
     Route: 048
  6. FOLIC ACID [Concomitant]
     Route: 048
  7. LORAZEPAM [Concomitant]
     Route: 048

REACTIONS (5)
  - DEEP VEIN THROMBOSIS [None]
  - VENOUS THROMBOSIS [None]
  - COLITIS ULCERATIVE [None]
  - COLECTOMY TOTAL [None]
  - TUBERCULOSIS [None]
